FAERS Safety Report 13293152 (Version 1)
Quarter: 2017Q1

REPORT INFORMATION
  Report Type: Spontaneous
  Country: JP (occurrence: JP)
  Receive Date: 20170303
  Receipt Date: 20170303
  Transmission Date: 20170428
  Serious: Yes (Hospitalization)
  Sender: FDA-Public Use
  Company Number: JP-JNJFOC-20160316546

PATIENT
  Age: 40 Year
  Sex: Male
  Weight: 82 kg

DRUGS (5)
  1. CANAGLU [Suspect]
     Active Substance: CANAGLIFLOZIN
     Indication: KETOACIDOSIS
     Dosage: FREQUENCY: ONCE EVERY OTHER DAY
     Route: 048
     Dates: end: 20160309
  2. LIPIDIL [Concomitant]
     Active Substance: FENOFIBRATE
     Route: 048
     Dates: start: 20150219, end: 20160309
  3. EQUA [Concomitant]
     Active Substance: VILDAGLIPTIN
     Indication: TYPE 2 DIABETES MELLITUS
     Route: 048
     Dates: start: 20141111, end: 20150714
  4. CANAGLU [Suspect]
     Active Substance: CANAGLIFLOZIN
     Indication: KETOACIDOSIS
     Route: 048
     Dates: start: 20150219
  5. XYZAL [Concomitant]
     Active Substance: LEVOCETIRIZINE DIHYDROCHLORIDE
     Route: 048
     Dates: start: 20151126, end: 20160309

REACTIONS (5)
  - Diabetic ketoacidosis [Unknown]
  - Product use issue [Unknown]
  - Off label use [Unknown]
  - Hyponatraemia [Unknown]
  - Inappropriate schedule of drug administration [Unknown]

NARRATIVE: CASE EVENT DATE: 20160309
